FAERS Safety Report 9641747 (Version 1)
Quarter: 2013Q4

REPORT INFORMATION
  Report Type: Spontaneous
  Country: US (occurrence: US)
  Receive Date: 20131023
  Receipt Date: 20131023
  Transmission Date: 20140711
  Serious: Yes (Other)
  Sender: FDA-Public Use
  Company Number: US-009507513-1310USA009220

PATIENT
  Age: 26 Year
  Sex: Male

DRUGS (1)
  1. SAPHRIS [Suspect]
     Dosage: 20 MG, QD

REACTIONS (2)
  - Osteonecrosis [Unknown]
  - Weight increased [Unknown]
